FAERS Safety Report 7388253-1 (Version None)
Quarter: 2011Q2

REPORT INFORMATION
  Report Type: 
  Country: None (occurrence: None)
  Receive Date: 20110401
  Receipt Date: 20091226
  Transmission Date: 20111010
  Serious: Yes (Other)
  Sender: FDA-Public Use
  Company Number: US-BAYER-200943384NA

PATIENT
  Sex: Female
  Weight: 55.329 kg

DRUGS (5)
  1. LASIX [Concomitant]
     Indication: PRODUCT USED FOR UNKNOWN INDICATION
     Dosage: 40 MG, BID
     Route: 048
  2. K-DUR [Concomitant]
     Dosage: 10 MEQ, QD
     Route: 048
  3. PREDNISONE [Concomitant]
     Dosage: LONG TERM USE
  4. LANOXIN [Concomitant]
     Dosage: 0.25 MG, QD
     Route: 048
  5. TRASYLOL [Suspect]
     Indication: MITRAL VALVE REPLACEMENT
     Dosage: UNK
     Route: 042
     Dates: start: 19980619

REACTIONS (4)
  - RENAL FAILURE [None]
  - PAIN [None]
  - INJURY [None]
  - UNEVALUABLE EVENT [None]
